FAERS Safety Report 25189149 (Version 1)
Quarter: 2025Q2

REPORT INFORMATION
  Report Type: Spontaneous
  Country: US (occurrence: None)
  Receive Date: 20250410
  Receipt Date: 20250410
  Transmission Date: 20250717
  Serious: Yes (Hospitalization)
  Sender: FDA-CTU
  Company Number: None

PATIENT
  Age: 64 Year
  Sex: Female
  Weight: 90 kg

DRUGS (1)
  1. LOVASTATIN [Suspect]
     Active Substance: LOVASTATIN
     Indication: Blood cholesterol increased

REACTIONS (8)
  - Mental disorder [None]
  - Generalised anxiety disorder [None]
  - Hypophagia [None]
  - Insomnia [None]
  - Brain fog [None]
  - Asthenia [None]
  - Asthenia [None]
  - Hypoaesthesia [None]

NARRATIVE: CASE EVENT DATE: 20210215
